FAERS Safety Report 15650552 (Version 2)
Quarter: 2018Q4

REPORT INFORMATION
  Report Type: Spontaneous
  Country: GB (occurrence: GB)
  Receive Date: 20181123
  Receipt Date: 20181124
  Transmission Date: 20190205
  Serious: Yes (Death)
  Sender: FDA-Public Use
  Company Number: GB-TEVA-2018-GB-977505

PATIENT
  Age: 83 Year
  Sex: Female
  Weight: 48.5 kg

DRUGS (9)
  1. COLECALCIFEROL [Concomitant]
     Active Substance: CHOLECALCIFEROL
     Route: 065
  2. CODEINE [Concomitant]
     Active Substance: CODEINE
     Route: 065
  3. BUMETANIDE. [Suspect]
     Active Substance: BUMETANIDE
     Indication: PULMONARY OEDEMA
     Dosage: BETWEEN 1MG AND 2MG DAILY
     Route: 048
     Dates: start: 20180816, end: 20180825
  4. GABAPENTIN. [Concomitant]
     Active Substance: GABAPENTIN
     Route: 065
  5. BISOPROLOL FUMARATE. [Concomitant]
     Active Substance: BISOPROLOL FUMARATE
     Route: 065
  6. FUROSEMIDE. [Suspect]
     Active Substance: FUROSEMIDE
     Indication: PULMONARY OEDEMA
     Dosage: VARIED FROM 40MG ONCE DAILY TO MAXIMUM 120MG DAILY
     Route: 048
     Dates: start: 20170830, end: 20180822
  7. FELODIPINE. [Concomitant]
     Active Substance: FELODIPINE
     Route: 065
  8. CASSIA [Concomitant]
     Route: 065
  9. BENDROFLUMETHIAZIDE [Concomitant]
     Active Substance: BENDROFLUMETHIAZIDE
     Dosage: STOPPED DURING ADMISSION DUE TO LOW BLOOD PRESSURE
     Route: 065

REACTIONS (2)
  - Pulmonary oedema [Fatal]
  - Hypernatraemia [Fatal]

NARRATIVE: CASE EVENT DATE: 20180809
